FAERS Safety Report 19083069 (Version 1)
Quarter: 2021Q2

REPORT INFORMATION
  Report Type: Spontaneous
  Country: JP (occurrence: JP)
  Receive Date: 20210401
  Receipt Date: 20210401
  Transmission Date: 20210717
  Serious: Yes (Hospitalization)
  Sender: FDA-Public Use
  Company Number: PHJP2018JP014088

PATIENT
  Age: 51 Year
  Sex: Female
  Weight: 43.4 kg

DRUGS (3)
  1. AFINITOR [Suspect]
     Active Substance: EVEROLIMUS
     Indication: BREAST CANCER
     Dosage: 10 MG
     Route: 048
     Dates: start: 201504, end: 201512
  2. EDIROL [Concomitant]
     Active Substance: ELDECALCITOL
     Indication: BONE LESION
     Dosage: 0.75 MG
     Route: 048
  3. AROMASIN [Concomitant]
     Active Substance: EXEMESTANE
     Indication: BREAST CANCER
     Dosage: 25 MG
     Route: 048

REACTIONS (9)
  - Papule [Unknown]
  - Skin mass [Unknown]
  - Cytokine abnormal [Unknown]
  - Drug eruption [Recovering/Resolving]
  - Pruritus [Unknown]
  - Blister [Unknown]
  - Erythema [Unknown]
  - Lichenification [Unknown]
  - Eosinophil count increased [Unknown]

NARRATIVE: CASE EVENT DATE: 201506
